FAERS Safety Report 12503357 (Version 1)
Quarter: 2016Q2

REPORT INFORMATION
  Report Type: Spontaneous
  Country: BR (occurrence: BR)
  Receive Date: 20160628
  Receipt Date: 20160628
  Transmission Date: 20160815
  Serious: Yes (Hospitalization, Other)
  Sender: FDA-Public Use
  Company Number: BR-SCIEGEN PHARMACEUTICALS INC-2016SCILIT00239

PATIENT
  Age: 69 Year
  Sex: Male

DRUGS (3)
  1. DICLOFENAC [Suspect]
     Active Substance: DICLOFENAC
     Indication: PRODUCT USED FOR UNKNOWN INDICATION
     Dosage: UNK
     Route: 065
  2. PARACETAMOL [Suspect]
     Active Substance: ACETAMINOPHEN
     Indication: PRODUCT USED FOR UNKNOWN INDICATION
     Dosage: UNK
     Route: 065
  3. CARISOPRODOL TABLETS [Suspect]
     Active Substance: CARISOPRODOL
     Indication: PRODUCT USED FOR UNKNOWN INDICATION
     Route: 065

REACTIONS (9)
  - Confusional state [Recovered/Resolved]
  - Tremor [Recovered/Resolved]
  - Condition aggravated [Unknown]
  - Disorientation [Unknown]
  - Somnolence [Recovered/Resolved]
  - Urinary incontinence [Unknown]
  - Hemiparesis [Recovered/Resolved]
  - Subdural haematoma [Recovered/Resolved]
  - Ataxia [Unknown]
